FAERS Safety Report 26185121 (Version 1)
Quarter: 2025Q4

REPORT INFORMATION
  Report Type: Spontaneous
  Country: KR (occurrence: KR)
  Receive Date: 20251222
  Receipt Date: 20251222
  Transmission Date: 20260117
  Serious: Yes (Other)
  Sender: CELLTRION
  Company Number: KR-CELLTRION INC.-2025KR045392

PATIENT

DRUGS (10)
  1. EYDENZELT [Suspect]
     Active Substance: AFLIBERCEPT-BOAV
     Indication: Neovascular age-related macular degeneration
     Dosage: UNK, ONCE
     Dates: start: 20250106
  2. EYDENZELT [Suspect]
     Active Substance: AFLIBERCEPT-BOAV
     Dosage: UNK
     Dates: start: 20250214
  3. EYDENZELT [Suspect]
     Active Substance: AFLIBERCEPT-BOAV
     Dosage: UNK
     Dates: start: 20250311
  4. EYDENZELT [Suspect]
     Active Substance: AFLIBERCEPT-BOAV
     Dosage: UNK
     Dates: start: 20250507
  5. EYDENZELT [Suspect]
     Active Substance: AFLIBERCEPT-BOAV
     Dosage: UNK
     Dates: start: 20250513
  6. EYDENZELT [Suspect]
     Active Substance: AFLIBERCEPT-BOAV
     Dosage: UNK
     Dates: start: 20250729
  7. EYDENZELT [Suspect]
     Active Substance: AFLIBERCEPT-BOAV
     Dosage: UNK
     Dates: start: 20250801
  8. EYDENZELT [Suspect]
     Active Substance: AFLIBERCEPT-BOAV
     Dosage: UNK
     Dates: start: 20251104
  9. EYDENZELT [Suspect]
     Active Substance: AFLIBERCEPT-BOAV
     Dosage: UNK
     Dates: start: 20251107
  10. EYDENZELT [Suspect]
     Active Substance: AFLIBERCEPT-BOAV
     Dosage: UNK
     Dates: start: 20251126

REACTIONS (3)
  - Cataract operation [Unknown]
  - Eye haemorrhage [Recovered/Resolved]
  - Off label use [Unknown]

NARRATIVE: CASE EVENT DATE: 20251104
